FAERS Safety Report 5573119-X (Version None)
Quarter: 2007Q4

REPORT INFORMATION
  Report Type: 
  Country: None (occurrence: None)
  Receive Date: 20071224
  Receipt Date: 20071213
  Transmission Date: 20080405
  Serious: Yes (Hospitalization)
  Sender: FDA-Public Use
  Company Number: GB-ROCHE-536934

PATIENT
  Age: 55 Year
  Sex: Female
  Weight: 150 kg

DRUGS (5)
  1. ORLISTAT [Suspect]
     Indication: OBESITY
     Route: 048
     Dates: start: 20070529, end: 20071201
  2. ENAPRIL [Concomitant]
     Indication: BLOOD PRESSURE
     Dates: start: 20040101
  3. FRUSEMIDE [Concomitant]
     Dates: start: 19990101
  4. UNSPECIFIED MEDICATION [Concomitant]
     Indication: UNEVALUABLE EVENT
     Dosage: INDICATION REPORTED AS STOMACH
     Dates: start: 20071210
  5. CIPROFLOXACIN [Concomitant]
     Indication: ANTI-INFECTIVE THERAPY
     Dosage: DRUG NAME REPORTED AS CIPROXACIN
     Dates: start: 20071210

REACTIONS (2)
  - HEADACHE [None]
  - WHITE BLOOD CELL COUNT DECREASED [None]
